FAERS Safety Report 5277931-6 (Version None)
Quarter: 2007Q1

REPORT INFORMATION
  Report Type: 
  Country: None (occurrence: None)
  Receive Date: 20070327
  Receipt Date: 20070315
  Transmission Date: 20070707
  Serious: Yes (Hospitalization)
  Sender: FDA-Public Use
  Company Number: US-PFIZER INC-2007023104

PATIENT
  Sex: Female

DRUGS (1)
  1. FRAGMIN [Suspect]
     Route: 051

REACTIONS (1)
  - PULMONARY EMBOLISM [None]
